FAERS Safety Report 8944296 (Version 2)
Quarter: 2013Q1

REPORT INFORMATION
  Report Type: Spontaneous
  Country: US (occurrence: US)
  Receive Date: 20121204
  Receipt Date: 20130204
  Transmission Date: 20140127
  Serious: No
  Sender: FDA-Public Use
  Company Number: US-AMGEN-USASP2012068611

PATIENT
  Age: 45 Year
  Sex: Female
  Weight: 95.24 kg

DRUGS (2)
  1. ENBREL [Suspect]
     Indication: PSORIASIS
     Dosage: 50 MG, 2 TIMES/WK
     Dates: start: 20120221, end: 20121022
  2. STELARA [Concomitant]
     Dosage: UNK
     Dates: start: 20121024

REACTIONS (2)
  - Drug ineffective [Recovered/Resolved]
  - Psoriasis [Not Recovered/Not Resolved]
